FAERS Safety Report 13955796 (Version 3)
Quarter: 2018Q2

REPORT INFORMATION
  Report Type: Spontaneous
  Country: US (occurrence: US)
  Receive Date: 20170911
  Receipt Date: 20180418
  Transmission Date: 20180711
  Serious: Yes (Hospitalization)
  Sender: FDA-Public Use
  Company Number: US-DSJP-DSU-2017-136223

PATIENT

DRUGS (1)
  1. TRIBENZOR [Suspect]
     Active Substance: AMLODIPINE BESYLATE\HYDROCHLOROTHIAZIDE\OLMESARTAN MEDOXOMIL
     Indication: HYPERTENSION
     Dosage: 40/5/25 MG, QD
     Route: 048
     Dates: start: 20110729, end: 20150410

REACTIONS (2)
  - Sprue-like enteropathy [Recovering/Resolving]
  - Diverticulum intestinal [Unknown]

NARRATIVE: CASE EVENT DATE: 20110729
